APPROVED DRUG PRODUCT: RITALIN LA
Active Ingredient: METHYLPHENIDATE HYDROCHLORIDE
Strength: 10MG
Dosage Form/Route: CAPSULE, EXTENDED RELEASE;ORAL
Application: N021284 | Product #004 | TE Code: AB1
Applicant: SANDOZ INC
Approved: Apr 10, 2004 | RLD: Yes | RS: No | Type: RX